FAERS Safety Report 4693903-4 (Version None)
Quarter: 2005Q2

REPORT INFORMATION
  Report Type: 
  Country: None (occurrence: None)
  Receive Date: 20050617
  Receipt Date: 20050317
  Transmission Date: 20051028
  Serious: Yes (Life-Threatening, Hospitalization, Disabling)
  Sender: FDA-Public Use
  Company Number: JP-MERCK-0503USA03725

PATIENT
  Age: 70 Year
  Sex: Male
  Weight: 69 kg

DRUGS (10)
  1. SINGULAIR [Suspect]
     Indication: ASTHMA
     Route: 048
     Dates: start: 20041221, end: 20050120
  2. PREDONINE [Suspect]
     Indication: ASTHMA
     Route: 048
  3. BAYASPIRIN [Suspect]
     Route: 048
     Dates: end: 20050120
  4. UNIPHYL [Concomitant]
     Route: 048
     Dates: start: 20041221, end: 20050120
  5. GASTROM [Concomitant]
     Route: 048
     Dates: start: 20041221, end: 20050120
  6. FLUTIDE [Concomitant]
     Route: 055
     Dates: start: 20041221, end: 20050120
  7. SEREVENT [Concomitant]
     Route: 055
     Dates: start: 20041221, end: 20050120
  8. SERMION [Concomitant]
     Route: 048
     Dates: end: 20050120
  9. DIOVAN [Concomitant]
     Route: 048
     Dates: end: 20050120
  10. NORVASC [Concomitant]
     Route: 048
     Dates: end: 20050120

REACTIONS (4)
  - ALLERGIC GRANULOMATOUS ANGIITIS [None]
  - PULMONARY HAEMORRHAGE [None]
  - RENAL DISORDER [None]
  - SEPSIS [None]
